FAERS Safety Report 11755186 (Version 1)
Quarter: 2015Q4

REPORT INFORMATION
  Report Type: Spontaneous
  Country: JP (occurrence: JP)
  Receive Date: 20151119
  Receipt Date: 20151119
  Transmission Date: 20160304
  Serious: Yes (Hospitalization)
  Sender: FDA-Public Use
  Company Number: PHJP1999JP006212

PATIENT
  Age: 75 Year
  Sex: Female

DRUGS (2)
  1. LAXOBERON [Concomitant]
     Active Substance: SODIUM PICOSULFATE
     Indication: ERYTHEMA
     Route: 065
  2. PURSENNID H-EXG+TAB [Suspect]
     Active Substance: SENNOSIDES
     Indication: ERYTHEMA
     Dosage: 12 MG, QD
     Route: 048
     Dates: start: 1996, end: 19990205

REACTIONS (2)
  - Lichenoid keratosis [Recovered/Resolved]
  - Rash [Recovered/Resolved]

NARRATIVE: CASE EVENT DATE: 199806
